FAERS Safety Report 11422362 (Version 2)
Quarter: 2015Q4

REPORT INFORMATION
  Report Type: Spontaneous
  Country: US (occurrence: US)
  Receive Date: 20150827
  Receipt Date: 20151123
  Transmission Date: 20160304
  Serious: Yes (Other)
  Sender: FDA-Public Use
  Company Number: US-PFIZER INC-2015273186

PATIENT
  Age: 63 Year
  Sex: Male

DRUGS (4)
  1. SUTENT [Suspect]
     Active Substance: SUNITINIB MALATE
     Indication: METASTATIC RENAL CELL CARCINOMA
     Dosage: 37.5 MG, CYCLIC (ON 28 DAYS, OFF 14 DAYS OVER A 2 YEAR, 4 MONTH PERIOD)
     Dates: start: 2013, end: 20150721
  2. LY2510924 [Suspect]
     Active Substance: INVESTIGATIONAL PRODUCT
     Indication: RENAL CANCER STAGE IV
     Dosage: 1 ML, CYCLIC (ON 28 DAYS, OFF 14 DAYS)
     Dates: start: 201304, end: 20150804
  3. LY2510924 [Suspect]
     Active Substance: INVESTIGATIONAL PRODUCT
     Indication: METASTATIC RENAL CELL CARCINOMA
  4. SUTENT [Suspect]
     Active Substance: SUNITINIB MALATE
     Indication: RENAL CANCER STAGE IV
     Dosage: 50 MG, CYCLIC (ON 28 DAYS, OFF 14 DAYS)
     Dates: start: 201301, end: 2013

REACTIONS (13)
  - Dysgeusia [Unknown]
  - Renal cancer stage IV [None]
  - Rectal haemorrhage [Unknown]
  - Disease progression [Not Recovered/Not Resolved]
  - Palmar-plantar erythrodysaesthesia syndrome [Unknown]
  - Malignant neoplasm progression [None]
  - Rash [Unknown]
  - Hypertension [Unknown]
  - Epistaxis [Unknown]
  - Treatment failure [None]
  - Neoplasm malignant [Not Recovered/Not Resolved]
  - Gastrointestinal disorder [Unknown]
  - Hair colour changes [Unknown]

NARRATIVE: CASE EVENT DATE: 20150511
